FAERS Safety Report 10245266 (Version 1)
Quarter: 2014Q2

REPORT INFORMATION
  Report Type: Spontaneous
  Country: FR (occurrence: FR)
  Receive Date: 20140618
  Receipt Date: 20140618
  Transmission Date: 20141212
  Serious: Yes (Hospitalization)
  Sender: FDA-Public Use
  Company Number: FR-ROCHE-1420112

PATIENT
  Age: 83 Year
  Sex: Male

DRUGS (12)
  1. ROACTEMRA [Suspect]
     Indication: VASCULITIS
     Route: 042
     Dates: start: 201403, end: 20140507
  2. ZITHROMAX [Concomitant]
  3. ATOVAQUONE [Concomitant]
  4. ZELITREX [Concomitant]
  5. PREVISCAN (FRANCE) [Concomitant]
  6. CORTANCYL [Concomitant]
  7. INEXIUM [Concomitant]
  8. ZOLPIDEM [Concomitant]
  9. LASILIX [Concomitant]
  10. SOTALOL HYDROCHLORIDE [Concomitant]
  11. CALCIDOSE [Concomitant]
  12. DOLIPRANE [Concomitant]

REACTIONS (1)
  - Impaired gastric emptying [Recovered/Resolved]
